FAERS Safety Report 5751689-6 (Version None)
Quarter: 2008Q2

REPORT INFORMATION
  Report Type: 
  Country: None (occurrence: None)
  Receive Date: 20080528
  Receipt Date: 20080522
  Transmission Date: 20081010
  Serious: Yes (Life-Threatening, Hospitalization)
  Sender: FDA-Public Use
  Company Number: PHHO2008GB03339

PATIENT
  Sex: Male
  Weight: 59 kg

DRUGS (5)
  1. AEB071 AEB+GELCAP [Suspect]
     Indication: RENAL TRANSPLANT
     Dosage: 400MG/DAY
     Route: 048
     Dates: start: 20070514
  2. MYFORTIC [Suspect]
     Indication: RENAL TRANSPLANT
     Dosage: 720 MG, BID
     Route: 048
     Dates: start: 20070821
  3. PREDNISOLONE [Concomitant]
     Indication: RENAL TRANSPLANT
     Dosage: 5 MG /DAILY
     Route: 048
     Dates: start: 20070817
  4. LANZOPRAZOL [Concomitant]
  5. ATENOLOL [Concomitant]
     Dosage: 50 MG, BID
     Route: 048

REACTIONS (6)
  - GASTRITIS [None]
  - HAEMATEMESIS [None]
  - HIATUS HERNIA [None]
  - LARGE INTESTINAL HAEMORRHAGE [None]
  - RECTAL HAEMORRHAGE [None]
  - THERAPEUTIC EMBOLISATION [None]
